FAERS Safety Report 5302943-3 (Version None)
Quarter: 2007Q2

REPORT INFORMATION
  Report Type: 
  Country: None (occurrence: None)
  Receive Date: 20070420
  Receipt Date: 20070405
  Transmission Date: 20071010
  Serious: Yes (Other)
  Sender: FDA-Public Use
  Company Number: PHNU2007DE01481

PATIENT
  Age: 79 Year
  Sex: Female

DRUGS (3)
  1. EXFORGE [Suspect]
     Indication: HYPERTENSION
     Dosage: UNK, UNK
     Dates: start: 20070401, end: 20070405
  2. DILZEM [Concomitant]
     Indication: HYPERTENSION
  3. CONCOR [Concomitant]
     Indication: HYPERTENSION

REACTIONS (3)
  - CONDITION AGGRAVATED [None]
  - DYSPNOEA [None]
  - LYMPHOEDEMA [None]
